FAERS Safety Report 7980767-6 (Version None)
Quarter: 2011Q4

REPORT INFORMATION
  Report Type: 
  Country: None (occurrence: None)
  Receive Date: 20111214
  Receipt Date: 20111209
  Transmission Date: 20120403
  Serious: Yes (Other)
  Sender: FDA-Public Use
  Company Number: BE-ABBOTT-11P-013-0879714-00

PATIENT
  Age: 80 Year
  Sex: Male

DRUGS (4)
  1. TEVETEN [Suspect]
     Indication: HYPERTENSION
  2. ATACAND [Suspect]
     Indication: HYPERTENSION
     Route: 048
  3. TEVETEN [Suspect]
     Indication: CARDIAC FAILURE
  4. ATACAND [Suspect]
     Indication: CARDIAC FAILURE

REACTIONS (1)
  - BRADYCARDIA [None]
